FAERS Safety Report 4870012-2 (Version None)
Quarter: 2005Q4

REPORT INFORMATION
  Report Type: 
  Country: None (occurrence: None)
  Receive Date: 20051223
  Receipt Date: 20051212
  Transmission Date: 20060501
  Serious: Yes (Hospitalization)
  Sender: FDA-Public Use
  Company Number: 2005BI022060

PATIENT
  Age: 45 Year
  Sex: Female
  Weight: 55.7924 kg

DRUGS (4)
  1. AVONEX [Suspect]
     Indication: MULTIPLE SCLEROSIS
     Dosage: 30 UG;QW;IM
     Route: 030
     Dates: start: 19980101, end: 20011001
  2. PROZAC [Concomitant]
  3. COPAXONE [Concomitant]
  4. REBIF [Concomitant]

REACTIONS (12)
  - BODY HEIGHT DECREASED [None]
  - BREAST CANCER FEMALE [None]
  - CONDITION AGGRAVATED [None]
  - INFLUENZA LIKE ILLNESS [None]
  - JOINT INJURY [None]
  - LIGAMENT INJURY [None]
  - MULTIPLE SCLEROSIS [None]
  - PYREXIA [None]
  - RESPIRATORY RATE DECREASED [None]
  - THROAT IRRITATION [None]
  - TREMOR [None]
  - WEIGHT DECREASED [None]
